FAERS Safety Report 23212960 (Version 1)
Quarter: 2023Q4

REPORT INFORMATION
  Report Type: Spontaneous
  Country: US (occurrence: None)
  Receive Date: 20231121
  Receipt Date: 20231121
  Transmission Date: 20240110
  Serious: Yes (Life-Threatening)
  Sender: FDA-Public Use
  Company Number: None

PATIENT
  Age: 70 Year
  Sex: Female
  Weight: 107 kg

DRUGS (1)
  1. PACLITAXEL [Suspect]
     Active Substance: PACLITAXEL
     Indication: Ovarian cancer
     Dates: start: 20231019, end: 20231019

REACTIONS (12)
  - Infusion related reaction [None]
  - Cough [None]
  - Swelling face [None]
  - Flushing [None]
  - Dyspnoea [None]
  - Blood pressure increased [None]
  - Nausea [None]
  - Unresponsive to stimuli [None]
  - Loss of consciousness [None]
  - Blood pressure immeasurable [None]
  - Pulse absent [None]
  - Heart rate increased [None]

NARRATIVE: CASE EVENT DATE: 20231019
